FAERS Safety Report 7755520-9 (Version None)
Quarter: 2011Q3

REPORT INFORMATION
  Report Type: 
  Country: None (occurrence: None)
  Receive Date: 20110825
  Receipt Date: 20110714
  Transmission Date: 20111222
  Serious: No
  Sender: FDA-Public Use
  Company Number: 332756

PATIENT
  Age: 50 Year
  Sex: Female

DRUGS (2)
  1. VICTOZA [Suspect]
     Indication: OFF LABEL USE
     Dates: start: 20110401
  2. VICTOZA [Suspect]
     Indication: OBESITY
     Dates: start: 20110401

REACTIONS (1)
  - VISUAL ACUITY REDUCED [None]
